FAERS Safety Report 24854079 (Version 3)
Quarter: 2025Q1

REPORT INFORMATION
  Report Type: Spontaneous
  Country: CN (occurrence: CN)
  Receive Date: 20250117
  Receipt Date: 20250207
  Transmission Date: 20250409
  Serious: Yes (Other)
  Sender: ROCHE
  Company Number: CN-ROCHE-10000179700

PATIENT
  Age: 65 Year
  Sex: Male
  Weight: 70 kg

DRUGS (4)
  1. AVASTIN [Suspect]
     Active Substance: BEVACIZUMAB
     Indication: Hepatic cancer
     Route: 040
     Dates: start: 20241211, end: 20241211
  2. AVASTIN [Suspect]
     Active Substance: BEVACIZUMAB
     Route: 040
  3. XGEVA [Suspect]
     Active Substance: DENOSUMAB
     Indication: Hepatic cancer
     Route: 058
     Dates: start: 20241218, end: 20241218
  4. SODIUM CHLORIDE [Concomitant]
     Active Substance: SODIUM CHLORIDE
     Dates: start: 20241211, end: 20241211

REACTIONS (2)
  - Myelosuppression [Recovering/Resolving]
  - Off label use [Unknown]

NARRATIVE: CASE EVENT DATE: 20241230
